FAERS Safety Report 9128154 (Version 1)
Quarter: 2013Q1

REPORT INFORMATION
  Report Type: Spontaneous
  Country: US (occurrence: US)
  Receive Date: 20130228
  Receipt Date: 20130228
  Transmission Date: 20140127
  Serious: No
  Sender: FDA-Public Use
  Company Number: US-BRISTOL-MYERS SQUIBB COMPANY-16410516

PATIENT
  Sex: 0

DRUGS (1)
  1. BICNU [Suspect]
     Dosage: VIAL-CMCA0003, NDC:0015-3012-18?BOX-0015-3012-60

REACTIONS (1)
  - Circumstance or information capable of leading to medication error [Unknown]
